FAERS Safety Report 9846048 (Version 1)
Quarter: 2014Q1

REPORT INFORMATION
  Report Type: Spontaneous
  Country: US (occurrence: US)
  Receive Date: 20140127
  Receipt Date: 20140127
  Transmission Date: 20141002
  Serious: Yes (Other)
  Sender: FDA-Public Use
  Company Number: PHHY2014US005751

PATIENT
  Age: 60 Year
  Sex: Male

DRUGS (7)
  1. CARBAMAZEPINE [Suspect]
     Indication: CONVULSION
  2. ZONISAMIDE [Concomitant]
     Dosage: UNK
  3. ARIPIPRAZOLE [Concomitant]
  4. LORAZEPAM [Concomitant]
  5. FLUOXETINE [Concomitant]
  6. TRIHEXYPHENIDYL [Concomitant]
  7. ASPIRIN [Concomitant]

REACTIONS (6)
  - Lymphoid tissue hyperplasia [Recovering/Resolving]
  - Skin plaque [Recovering/Resolving]
  - Rash [Recovering/Resolving]
  - Neck mass [Recovering/Resolving]
  - Mycosis fungoides [Recovering/Resolving]
  - Dermatofibrosarcoma protuberans [Recovering/Resolving]
